FAERS Safety Report 4959277-6 (Version None)
Quarter: 2006Q1

REPORT INFORMATION
  Report Type: 
  Country: None (occurrence: None)
  Receive Date: 20060331
  Receipt Date: 20060327
  Transmission Date: 20060701
  Serious: Yes (Hospitalization)
  Sender: FDA-Public Use
  Company Number: US-SANOFI-SYNTHELABO-A03200601762

PATIENT
  Sex: Female

DRUGS (2)
  1. AMBIEN [Suspect]
     Indication: INSOMNIA
     Route: 048
     Dates: start: 20040101
  2. AMBIEN [Suspect]
     Route: 048
     Dates: end: 20060301

REACTIONS (7)
  - ABNORMAL BEHAVIOUR [None]
  - AMNESIA [None]
  - BLUNTED AFFECT [None]
  - HIP FRACTURE [None]
  - IMPAIRED DRIVING ABILITY [None]
  - LOSS OF CONSCIOUSNESS [None]
  - ROAD TRAFFIC ACCIDENT [None]
